FAERS Safety Report 5686778-8 (Version None)
Quarter: 2008Q1

REPORT INFORMATION
  Report Type: 
  Country: None (occurrence: None)
  Receive Date: 20080328
  Receipt Date: 20070606
  Transmission Date: 20080703
  Serious: No
  Sender: FDA-Public Use
  Company Number: US-BAYER-US-2007-021322

PATIENT
  Age: 47 Year
  Sex: Female
  Weight: 74 kg

DRUGS (8)
  1. MIRENA [Suspect]
     Indication: UTERINE LEIOMYOMA
     Route: 015
     Dates: start: 20070102
  2. VENTOLIN [Concomitant]
  3. LOVASTATIN [Concomitant]
  4. LISINOPRIL [Concomitant]
  5. GLIMEPIRIDE [Concomitant]
  6. FLUOXETINE [Concomitant]
  7. TOPAMAX [Concomitant]
  8. BUPROPION HCL [Concomitant]

REACTIONS (2)
  - CONSTIPATION [None]
  - MENOMETRORRHAGIA [None]
